FAERS Safety Report 7463515-8 (Version None)
Quarter: 2011Q2

REPORT INFORMATION
  Report Type: 
  Country: None (occurrence: None)
  Receive Date: 20110506
  Receipt Date: 20110503
  Transmission Date: 20111010
  Serious: Yes (Other)
  Sender: FDA-Public Use
  Company Number: PHHY2011US37634

PATIENT
  Sex: Female

DRUGS (1)
  1. TOBI [Suspect]
     Indication: BRONCHIECTASIS
     Dosage: 300 MG, BID
     Dates: start: 20110328, end: 20110425

REACTIONS (3)
  - CONDITION AGGRAVATED [None]
  - MYOCLONUS [None]
  - TREMOR [None]
